FAERS Safety Report 18683347 (Version 2)
Quarter: 2021Q1

REPORT INFORMATION
  Report Type: Report from Study
  Country: DO (occurrence: DO)
  Receive Date: 20201230
  Receipt Date: 20210118
  Transmission Date: 20210419
  Serious: Yes (Other)
  Sender: FDA-Public Use
  Company Number: NVSC2020DO221616

PATIENT
  Age: 35 Year
  Sex: Female

DRUGS (9)
  1. FOLIC ACID. [Concomitant]
     Active Substance: FOLIC ACID
     Dosage: UNK
     Route: 065
     Dates: start: 201903
  2. TARGEL [Concomitant]
     Indication: PSORIASIS
     Dosage: UNK
     Route: 065
     Dates: start: 201903
  3. METHOTREXATE. [Concomitant]
     Active Substance: METHOTREXATE
     Indication: PSORIASIS
     Dosage: 25 MG, QW
     Route: 030
     Dates: start: 20180322
  4. COSENTYX [Suspect]
     Active Substance: SECUKINUMAB
     Dosage: 300 MG, UNKNOWN
     Route: 058
     Dates: start: 20191127
  5. FOLIC ACID. [Concomitant]
     Active Substance: FOLIC ACID
     Indication: PSORIASIS
     Dosage: 5 MG (5 MG DAILY EXCEPT THE SAME DAY THE PATIENT TAKES METHOTREXATE)
     Route: 065
     Dates: start: 20180306
  6. METHOTREXATE. [Concomitant]
     Active Substance: METHOTREXATE
     Dosage: UNK
     Route: 065
     Dates: start: 201905
  7. COSENTYX [Suspect]
     Active Substance: SECUKINUMAB
     Indication: PSORIASIS
     Dosage: 300 MG, UNKNOWN
     Route: 058
     Dates: start: 20190726, end: 20190823
  8. COSENTYX [Suspect]
     Active Substance: SECUKINUMAB
     Dosage: UNK
     Route: 058
     Dates: start: 20191105
  9. VASELINE PURE [Concomitant]
     Active Substance: PETROLATUM
     Indication: PSORIASIS
     Dosage: UNK, QD
     Route: 061
     Dates: start: 201601

REACTIONS (3)
  - Respiratory tract infection [Recovered/Resolved]
  - Diabetes mellitus [Recovering/Resolving]
  - Urinary tract infection [Recovered/Resolved]

NARRATIVE: CASE EVENT DATE: 20200303
